FAERS Safety Report 14215389 (Version 1)
Quarter: 2017Q4

REPORT INFORMATION
  Report Type: Report from Study
  Country: US (occurrence: US)
  Receive Date: 20171122
  Receipt Date: 20171122
  Transmission Date: 20180321
  Serious: Yes (Other)
  Sender: FDA-Public Use
  Company Number: US-JNJFOC-20170618969

PATIENT
  Age: 71 Year
  Sex: Female

DRUGS (32)
  1. PRILOSEC [Concomitant]
     Active Substance: OMEPRAZOLE MAGNESIUM
  2. ADVAIR HFA [Concomitant]
     Active Substance: FLUTICASONE PROPIONATE\SALMETEROL XINAFOATE
  3. TYLENOL [Concomitant]
     Active Substance: ACETAMINOPHEN
  4. IMBRUVICA [Suspect]
     Active Substance: IBRUTINIB
     Indication: CHRONIC LYMPHOCYTIC LEUKAEMIA
     Route: 048
     Dates: start: 20170508
  5. ALBUTEROL. [Concomitant]
     Active Substance: ALBUTEROL
  6. NOVOLOG [Concomitant]
     Active Substance: INSULIN ASPART
  7. LANTUS [Concomitant]
     Active Substance: INSULIN GLARGINE
  8. VITAMINS NOS [Concomitant]
     Active Substance: VITAMINS
  9. IMBRUVICA [Suspect]
     Active Substance: IBRUTINIB
     Indication: CHRONIC LYMPHOCYTIC LEUKAEMIA
     Route: 048
     Dates: start: 20170509
  10. VITAMIN D3 [Concomitant]
     Active Substance: CHOLECALCIFEROL
  11. NORCO [Concomitant]
     Active Substance: ACETAMINOPHEN\HYDROCODONE BITARTRATE
  12. TOPROL XL [Concomitant]
     Active Substance: METOPROLOL SUCCINATE
  13. LOSARTAN. [Concomitant]
     Active Substance: LOSARTAN
  14. LISINOPRIL. [Concomitant]
     Active Substance: LISINOPRIL
  15. PROCHLORPERAZINE. [Concomitant]
     Active Substance: PROCHLORPERAZINE
  16. ZOFRAN [Concomitant]
     Active Substance: ONDANSETRON HYDROCHLORIDE
  17. GLIMEPIRIDE. [Concomitant]
     Active Substance: GLIMEPIRIDE
  18. ATORVASTATIN [Concomitant]
     Active Substance: ATORVASTATIN
  19. POTASSIUM [Concomitant]
     Active Substance: POTASSIUM
  20. SYNTHROID [Concomitant]
     Active Substance: LEVOTHYROXINE SODIUM
  21. SIMVASTATIN. [Concomitant]
     Active Substance: SIMVASTATIN
  22. BUDESONIDE. [Concomitant]
     Active Substance: BUDESONIDE
  23. GLUCOVANCE [Concomitant]
     Active Substance: GLYBURIDE\METFORMIN HYDROCHLORIDE
  24. CALCIUM CARBONATE. [Concomitant]
     Active Substance: CALCIUM CARBONATE
  25. VITAMIN D [Concomitant]
     Active Substance: CHOLECALCIFEROL
  26. AUGMENTIN [Concomitant]
     Active Substance: AMOXICILLIN\CLAVULANATE POTASSIUM
  27. ACYCLOVIR. [Concomitant]
     Active Substance: ACYCLOVIR
  28. PRAVACHOL [Concomitant]
     Active Substance: PRAVASTATIN SODIUM
  29. ASCORBIC ACID. [Concomitant]
     Active Substance: ASCORBIC ACID
  30. AVASTIN [Concomitant]
     Active Substance: BEVACIZUMAB
  31. HCTZ [Concomitant]
     Active Substance: HYDROCHLOROTHIAZIDE
  32. LASIX [Concomitant]
     Active Substance: FUROSEMIDE

REACTIONS (5)
  - Thirst [Unknown]
  - Fatigue [Unknown]
  - Incorrect dose administered [Unknown]
  - Off label use [Unknown]
  - Blood glucose increased [Unknown]

NARRATIVE: CASE EVENT DATE: 20170508
